FAERS Safety Report 19072603 (Version 1)
Quarter: 2021Q1

REPORT INFORMATION
  Report Type: Spontaneous
  Country: US (occurrence: US)
  Receive Date: 20210330
  Receipt Date: 20210330
  Transmission Date: 20210420
  Serious: No
  Sender: FDA-Public Use
  Company Number: US-GLAXOSMITHKLINE-US2021AMR066993

PATIENT
  Sex: Female

DRUGS (2)
  1. NUCALA [Suspect]
     Active Substance: MEPOLIZUMAB
     Indication: ASTHMA
     Dosage: UNK, EVERY 4 WEEKS
  2. MODERNA COVID?19 VACCINE [Suspect]
     Active Substance: CX-024414
     Indication: PROPHYLAXIS
     Dosage: UNK
     Dates: start: 20210310

REACTIONS (4)
  - Nonspecific reaction [Unknown]
  - Asthma [Recovered/Resolved]
  - Bronchitis [Recovering/Resolving]
  - Dysphonia [Unknown]
